FAERS Safety Report 17950681 (Version 1)
Quarter: 2020Q2

REPORT INFORMATION
  Report Type: Report from Study
  Country: ES (occurrence: ES)
  Receive Date: 20200626
  Receipt Date: 20200626
  Transmission Date: 20200714
  Serious: Yes (Hospitalization)
  Sender: FDA-Public Use
  Company Number: ES-MYLANLABS-2020M1058080

PATIENT
  Age: 48 Year
  Sex: Female
  Weight: 94 kg

DRUGS (6)
  1. PREDNISONA [Interacting]
     Active Substance: PREDNISONE
     Indication: RENAL TRANSPLANT
     Dosage: 20 MILLIGRAM, QD
     Route: 048
     Dates: start: 20200323
  2. METOCLOPRAMIDA                     /00041901/ [Interacting]
     Active Substance: METOCLOPRAMIDE
     Indication: VOMITING
     Dosage: 10 MILLIGRAM, BID
     Route: 042
     Dates: start: 20200325, end: 20200331
  3. HIDROXICLOROQUINA SULFATO [Interacting]
     Active Substance: HYDROXYCHLOROQUINE SULFATE
     Indication: COVID-19
     Dosage: 400 MILLIGRAM, QD
     Route: 048
     Dates: start: 20200324, end: 20200328
  4. TACROLIMUS. [Interacting]
     Active Substance: TACROLIMUS
     Indication: RENAL TRANSPLANT
     Dosage: 8 MILLIGRAM, QD
     Route: 048
     Dates: start: 20200329, end: 20200401
  5. AZITHROMYCIN ANHYDROUS. [Suspect]
     Active Substance: AZITHROMYCIN ANHYDROUS
     Indication: COVID-19
     Dosage: 500 MILLIGRAM, QD
     Route: 048
     Dates: start: 20200327, end: 20200401
  6. TOCILIZUMAB. [Interacting]
     Active Substance: TOCILIZUMAB
     Indication: COVID-19
     Dosage: 800 MILLIGRAM, QD
     Route: 042
     Dates: start: 20200331, end: 20200331

REACTIONS (4)
  - Mixed liver injury [Recovered/Resolved]
  - Off label use [Unknown]
  - Drug interaction [Unknown]
  - Delusional disorder, persecutory type [Recovered/Resolved]

NARRATIVE: CASE EVENT DATE: 20200401
